FAERS Safety Report 24349394 (Version 1)
Quarter: 2024Q3

REPORT INFORMATION
  Report Type: Spontaneous
  Country: US (occurrence: US)
  Receive Date: 20240923
  Receipt Date: 20240923
  Transmission Date: 20241016
  Serious: Yes (Life-Threatening, Hospitalization, Other)
  Sender: DR REDDYS
  Company Number: None

PATIENT
  Age: 85 Year
  Sex: Female
  Weight: 57.9 kg

DRUGS (1)
  1. HEPARIN [Suspect]
     Active Substance: HEPARIN SODIUM
     Indication: Thrombosis prophylaxis
     Route: 058

REACTIONS (4)
  - Coagulopathy [Recovered/Resolved]
  - Cerebral mass effect [Recovering/Resolving]
  - Haemorrhage intracranial [Recovering/Resolving]
  - Arachnoid cyst [Recovering/Resolving]
